FAERS Safety Report 11044789 (Version 1)
Quarter: 2015Q2

REPORT INFORMATION
  Report Type: Spontaneous
  Country: US (occurrence: None)
  Receive Date: 20150415
  Receipt Date: 20150415
  Transmission Date: 20150821
  Serious: Yes (Life-Threatening, Hospitalization)
  Sender: FDA-Public Use
  Company Number: 2015/026

PATIENT
  Age: 30 Year
  Sex: Female

DRUGS (1)
  1. LEVOFLOXACIN (NO PREF. NAME) 500 MG [Suspect]
     Active Substance: LEVOFLOXACIN

REACTIONS (6)
  - Vaginal haemorrhage [None]
  - Hepatic failure [None]
  - Vanishing bile duct syndrome [None]
  - Stevens-Johnson syndrome [None]
  - Jaundice [None]
  - Liver transplant [None]
